FAERS Safety Report 12811057 (Version 1)
Quarter: 2016Q4

REPORT INFORMATION
  Report Type: Spontaneous
  Country: US (occurrence: US)
  Receive Date: 20161005
  Receipt Date: 20161005
  Transmission Date: 20170207
  Serious: No
  Sender: FDA-Public Use
  Company Number: US-APOTEX-2016AP007844

PATIENT
  Age: 4 Month

DRUGS (3)
  1. PROPRANOLOL [Suspect]
     Active Substance: PROPRANOLOL\PROPRANOLOL HYDROCHLORIDE
     Dosage: UNK
     Route: 048
  2. TIMOLOL MALEATE OPHTHALMIC SOLUTION USP [Suspect]
     Active Substance: TIMOLOL MALEATE
     Indication: ULCERATED HAEMANGIOMA
     Dosage: 0.5%, 1 DROP TWO TIMES A DAY
     Route: 061
  3. PROPRANOLOL [Suspect]
     Active Substance: PROPRANOLOL\PROPRANOLOL HYDROCHLORIDE
     Indication: ULCERATED HAEMANGIOMA
     Dosage: 1.5 MG/KG/DAY
     Route: 048

REACTIONS (1)
  - Sleep disorder [Recovered/Resolved]
